FAERS Safety Report 6435450-5 (Version None)
Quarter: 2009Q4

REPORT INFORMATION
  Report Type: 
  Country: None (occurrence: None)
  Receive Date: 20091106
  Receipt Date: 20091026
  Transmission Date: 20100525
  Serious: Yes (Other)
  Sender: FDA-Public Use
  Company Number: 20090484

PATIENT
  Age: 34 Year
  Sex: Female

DRUGS (18)
  1. VENOFER [Suspect]
     Dosage: INTRAVENOUS
     Route: 042
     Dates: start: 20080613, end: 20081217
  2. AMLODIPINE [Concomitant]
  3. ANTIBIOTREX GEL (ISOTRETINOIN, ERYTHROMYCIN) [Concomitant]
  4. ARANESP [Concomitant]
  5. ATARAX (HYDROXIZINE) [Concomitant]
  6. AZATHIOPRINE SODIUM [Concomitant]
  7. NEXIUM [Concomitant]
  8. KAYEXALATE (SODIUM POLYSTRYRENE SULFONATE) [Concomitant]
  9. LASIX [Concomitant]
  10. MUCOMYST [Concomitant]
  11. NEORAL [Concomitant]
  12. CEFPODOXIME PROXETIL [Concomitant]
  13. PIVALONE !% (SUSPENSION) (TIXOCORTOL PIVALATE) [Concomitant]
  14. RENAGEL [Concomitant]
  15. RHINOFLUIMUCIL (TUAMINOHEPTANE HEMISULFATE) [Concomitant]
  16. RUBOZINC (ZINC GLUCONATE) [Concomitant]
  17. SPECIAFOLDINE (FOLIC ACID) [Concomitant]
  18. IM-ALFA (ALFACALCIDOL) [Concomitant]

REACTIONS (2)
  - DRUG EXPOSURE DURING PREGNANCY [None]
  - STILLBIRTH [None]
